FAERS Safety Report 13253906 (Version 1)
Quarter: 2017Q1

REPORT INFORMATION
  Report Type: Spontaneous
  Country: US (occurrence: US)
  Receive Date: 20170220
  Receipt Date: 20170220
  Transmission Date: 20170428
  Serious: Yes (Hospitalization, Other)
  Sender: FDA-Public Use
  Company Number: US-ROCHE-1892040

PATIENT
  Age: 64 Year
  Sex: Female
  Weight: 66.28 kg

DRUGS (3)
  1. AVASTIN [Suspect]
     Active Substance: BEVACIZUMAB
     Indication: OVARIAN CANCER
     Dosage: NO
     Route: 065
     Dates: start: 2013
  2. CYCLOPHOSPHAMIDE. [Concomitant]
     Active Substance: CYCLOPHOSPHAMIDE
     Indication: OVARIAN CANCER
     Route: 065
  3. AVASTIN [Suspect]
     Active Substance: BEVACIZUMAB
     Route: 065

REACTIONS (8)
  - Feeling hot [Unknown]
  - Headache [Unknown]
  - Nausea [Unknown]
  - Hypothermia [Not Recovered/Not Resolved]
  - Hyperhidrosis [Unknown]
  - Fibromyalgia [Not Recovered/Not Resolved]
  - Dizziness [Unknown]
  - Feeling abnormal [Unknown]

NARRATIVE: CASE EVENT DATE: 20170206
